FAERS Safety Report 21617420 (Version 1)
Quarter: 2022Q4

REPORT INFORMATION
  Report Type: Spontaneous
  Country: CN (occurrence: CN)
  Receive Date: 20221119
  Receipt Date: 20221119
  Transmission Date: 20230113
  Serious: Yes (Other)
  Sender: FDA-Public Use
  Company Number: None

PATIENT
  Age: 4 Year
  Sex: Female
  Weight: 14.6 kg

DRUGS (4)
  1. CYCLOPHOSPHAMIDE [Suspect]
     Active Substance: CYCLOPHOSPHAMIDE
     Indication: Nephroblastoma
     Dosage: 0.78 G, QD, DILUTED WITH 250 ML OF 4:1 GLUCOSE AND SODIUM CHLORIDE
     Route: 041
     Dates: start: 20220922, end: 20220923
  2. DEXTROSE\SODIUM CHLORIDE [Suspect]
     Active Substance: DEXTROSE\SODIUM CHLORIDE
     Indication: Medication dilution
     Dosage: 250 ML, QD, USED TO DILUTE 0.78G OF CYCLOPHOSPHAMIDE.
     Route: 041
     Dates: start: 20220922, end: 20220923
  3. SODIUM CHLORIDE [Suspect]
     Active Substance: SODIUM CHLORIDE
     Indication: Medication dilution
     Dosage: 250 ML, QD, USED TO DILUTE 20 MG OF EPIRUBICIN HYDROCHLORIDE
     Route: 041
     Dates: start: 20220922, end: 20220924
  4. EPIRUBICIN [Suspect]
     Active Substance: EPIRUBICIN
     Indication: Nephroblastoma
     Dosage: 16 MG, QD, DILUTED WITH 250 ML OF 0.9% SODIUM CHLORIDE
     Route: 041
     Dates: start: 20220922, end: 20220924

REACTIONS (1)
  - Myelosuppression [Recovering/Resolving]

NARRATIVE: CASE EVENT DATE: 20220927
